FAERS Safety Report 9192760 (Version 1)
Quarter: 2013Q1

REPORT INFORMATION
  Report Type: Spontaneous
  Country: US (occurrence: None)
  Receive Date: 20120703
  Receipt Date: 20120703
  Transmission Date: 20140127
  Serious: Yes (Other)
  Sender: FDA-Public Use
  Company Number: PHEH2012US010501

PATIENT
  Age: 40 Year
  Sex: Male

DRUGS (6)
  1. GILENYA (FTY) CAPSULE [Suspect]
     Route: 048
  2. LISINOPRIL (LISINOPRIL) [Concomitant]
  3. CITALOPRAM (CITALOPRAM) [Concomitant]
  4. NUVIGIL (ARMODAFINIL) [Concomitant]
  5. ENABLEX (DARIFENACIN HYDROBROMIDE) [Concomitant]
  6. CALYSIS [Concomitant]

REACTIONS (1)
  - Macular oedema [None]
